FAERS Safety Report 6712901-X (Version None)
Quarter: 2010Q2

REPORT INFORMATION
  Report Type: 
  Country: None (occurrence: None)
  Receive Date: 20100506
  Receipt Date: 20100428
  Transmission Date: 20101027
  Serious: Yes (Death)
  Sender: FDA-Public Use
  Company Number: GB-TYCO HEALTHCARE/MALLINCKRODT-T201001118

PATIENT
  Age: 80 Year
  Sex: Male

DRUGS (4)
  1. TECHNESCAN [Suspect]
     Indication: BONE SCAN
     Dosage: UNK
     Route: 042
     Dates: start: 20100427, end: 20100427
  2. ULTRA-TECHNEKOW FM [Suspect]
     Indication: BONE SCAN
     Dosage: 620 MBQ, UNK
     Route: 042
     Dates: start: 20100427, end: 20100427
  3. DIAMORPHINE [Concomitant]
  4. OXYTETRACYCLINE [Concomitant]

REACTIONS (1)
  - ANAPHYLACTIC REACTION [None]
